FAERS Safety Report 9419749 (Version 2)
Quarter: 2013Q3

REPORT INFORMATION
  Report Type: Spontaneous
  Country: US (occurrence: None)
  Receive Date: 20130723
  Receipt Date: 20130730
  Transmission Date: 20140515
  Serious: Yes (Other)
  Sender: FDA-Public Use
  Company Number: 2013P1011920

PATIENT
  Age: 45 Year
  Sex: Male

DRUGS (4)
  1. INFUMORPH [Suspect]
     Indication: PAIN
     Route: 037
  2. INFUMORPH [Suspect]
     Indication: BACK PAIN
     Route: 037
  3. EQUETRO [Concomitant]
  4. VITAMIN D3 [Concomitant]

REACTIONS (1)
  - Drug ineffective [None]
